FAERS Safety Report 10649291 (Version 1)
Quarter: 2014Q4

REPORT INFORMATION
  Report Type: Report from Study
  Country: US (occurrence: US)
  Receive Date: 20141212
  Receipt Date: 20141212
  Transmission Date: 20150529
  Serious: Yes (Hospitalization)
  Sender: FDA-Public Use
  Company Number: US-TEVA-528599USA

PATIENT
  Age: 1 Year
  Sex: Female
  Weight: 9.33 kg

DRUGS (9)
  1. CYTARABINE. [Suspect]
     Active Substance: CYTARABINE
     Indication: ACUTE LYMPHOCYTIC LEUKAEMIA
     Dosage: LAST ADMINISTERED DATE 26-NOV-2014
     Route: 037
     Dates: start: 20140428
  2. HYDROCORTISONE. [Suspect]
     Active Substance: HYDROCORTISONE
     Indication: ACUTE LYMPHOCYTIC LEUKAEMIA
     Dosage: LAST ADMINISTERED DATE 26-NOV-2014
     Route: 037
     Dates: start: 20140428
  3. LESTAURTINIB [Suspect]
     Active Substance: LESTAURTINIB
     Indication: ACUTE LYMPHOCYTIC LEUKAEMIA
     Dosage: LAST ADMINISTERED DATE 01-DEC-2014
     Route: 065
     Dates: start: 20140428
  4. CYTARABINE. [Suspect]
     Active Substance: CYTARABINE
     Route: 037
     Dates: end: 20140819
  5. MERCAPTOPURINE. [Suspect]
     Active Substance: MERCAPTOPURINE
     Indication: ACUTE LYMPHOCYTIC LEUKAEMIA
     Dosage: LAST ADMINISTERED DATE 04-DEC-2014
     Route: 065
     Dates: start: 20140428
  6. METHOTREXATE [Suspect]
     Active Substance: METHOTREXATE
     Indication: ACUTE LYMPHOCYTIC LEUKAEMIA
     Dosage: LAST ADMINISTERED DATE 03-DEC-2014
     Route: 037
     Dates: start: 20140428
  7. METHOTREXATE [Suspect]
     Active Substance: METHOTREXATE
     Dosage: LAST ADMINISTERED DATE 03-DEC-2014
     Route: 042
     Dates: start: 20140428
  8. VINCRISTINE [Suspect]
     Active Substance: VINCRISTINE
     Indication: ACUTE LYMPHOCYTIC LEUKAEMIA
     Dosage: LAST ADMINISTERED DATE 26-NOV-2014
     Route: 065
     Dates: start: 20140428
  9. DEXAMETHASONE. [Suspect]
     Active Substance: DEXAMETHASONE
     Indication: ACUTE LYMPHOCYTIC LEUKAEMIA
     Dosage: LAST ADMINISTERED DATE 30-NOV-2014
     Route: 065
     Dates: start: 20140428

REACTIONS (1)
  - Staphylococcal bacteraemia [Recovering/Resolving]

NARRATIVE: CASE EVENT DATE: 20141203
